FAERS Safety Report 9663215 (Version 1)
Quarter: 2013Q4

REPORT INFORMATION
  Report Type: Spontaneous
  Country: US (occurrence: US)
  Receive Date: 20131101
  Receipt Date: 20131101
  Transmission Date: 20140711
  Serious: Yes (Other)
  Sender: FDA-Public Use
  Company Number: US-BIOGENIDEC-2013BI104124

PATIENT
  Sex: Male

DRUGS (8)
  1. AVONEX [Suspect]
     Indication: MULTIPLE SCLEROSIS
     Route: 030
     Dates: start: 20110707
  2. ALFUZOSIN HCL ER [Concomitant]
  3. COUMADIN [Concomitant]
  4. FLOMAX [Concomitant]
  5. IBUPROFEN [Concomitant]
  6. LATANOPROST [Concomitant]
  7. LOSARTAN POTASSIUM HCTZ [Concomitant]
  8. WARFARIN SODIUM [Concomitant]

REACTIONS (4)
  - Deep vein thrombosis [Unknown]
  - Pulmonary embolism [Unknown]
  - Hallucination [Unknown]
  - Influenza like illness [Unknown]
